FAERS Safety Report 10275009 (Version 1)
Quarter: 2014Q3

REPORT INFORMATION
  Report Type: Spontaneous
  Country: BR (occurrence: BR)
  Receive Date: 20140703
  Receipt Date: 20140703
  Transmission Date: 20150326
  Serious: Yes (Life-Threatening, Other)
  Sender: FDA-Public Use
  Company Number: BR-ROCHE-1426467

PATIENT
  Sex: Male
  Weight: 76 kg

DRUGS (7)
  1. HYDROCHLOROTHIAZIDE. [Concomitant]
     Active Substance: HYDROCHLOROTHIAZIDE
     Indication: BLOOD PRESSURE
     Dosage: A TABLET IN THE MORNING
     Route: 065
     Dates: start: 2011
  2. RIVOTRIL [Suspect]
     Active Substance: CLONAZEPAM
     Indication: BALANCE DISORDER
  3. GINKGO BILOBA [Concomitant]
     Active Substance: GINKGO
     Route: 065
     Dates: start: 2011
  4. RIVOTRIL [Suspect]
     Active Substance: CLONAZEPAM
     Indication: AGITATION
     Dosage: A TABLET IN THE MORNING AND ONE AT NIGHT
     Route: 065
  5. HYDROCHLOROTHIAZIDE. [Concomitant]
     Active Substance: HYDROCHLOROTHIAZIDE
     Indication: POLYURIA
  6. RIVOTRIL [Suspect]
     Active Substance: CLONAZEPAM
     Indication: INSOMNIA
  7. PHENYTOIN. [Concomitant]
     Active Substance: PHENYTOIN
     Dosage: IN THE MORNING
     Route: 065
     Dates: start: 2013

REACTIONS (6)
  - Agitation [Recovered/Resolved]
  - Hypertensive crisis [Recovered/Resolved]
  - Insomnia [Recovered/Resolved]
  - Therapy cessation [Unknown]
  - Amnesia [Recovered/Resolved]
  - Loss of consciousness [Recovered/Resolved]
